FAERS Safety Report 7086287 (Version 2)
Quarter: 2014Q1

REPORT INFORMATION
  Report Type: Spontaneous
  Country: US (occurrence: None)
  Receive Date: 20090812
  Receipt Date: 20140225
  Transmission Date: 20141002
  Serious: Yes (Other)
  Sender: FDA-Public Use
  Company Number: 2009S1006430

PATIENT
  Age: 53 Year
  Sex: Male
  Weight: 87.54 kg

DRUGS (5)
  1. FLEET PHOSPHO-SODA [Suspect]
     Indication: COLONOSCOPY
     Dosage: 90 ML, 2 IN 24 HOURS, ORAL
     Route: 048
     Dates: start: 20061203, end: 20061203
  2. DULCOLAX [Suspect]
     Indication: COLONOSCOPY
     Dosage: 20 MILLIGRAM, 4 IN 24 HOURS, ORAL
     Route: 048
     Dates: start: 20061202, end: 20061202
  3. LISINOPRIL HCT  (HYDROCHLOROTHIAZIDE, LISINOPRIL DIHYDRATE) [Concomitant]
  4. SIMVASTATIN (SIMVASTATIN) [Concomitant]
  5. ASPIRIN (ACETYLSALICYLIC ACID) [Concomitant]

REACTIONS (2)
  - Nephropathy [None]
  - Renal impairment [None]
